FAERS Safety Report 23919172 (Version 1)
Quarter: 2024Q2

REPORT INFORMATION
  Report Type: Spontaneous
  Country: US (occurrence: None)
  Receive Date: 20240529
  Receipt Date: 20240529
  Transmission Date: 20240716
  Serious: Yes (Hospitalization)
  Sender: FDA-Public Use
  Company Number: None

PATIENT
  Age: 74 Year
  Sex: Female

DRUGS (1)
  1. ARAVA [Suspect]
     Active Substance: LEFLUNOMIDE
     Dosage: OTHER FREQUENCY : QAM;?

REACTIONS (6)
  - Vomiting [None]
  - Diarrhoea [None]
  - Neuropathy peripheral [None]
  - Asthenia [None]
  - Dyspnoea [None]
  - Therapy cessation [None]
